FAERS Safety Report 24465231 (Version 1)
Quarter: 2024Q4

REPORT INFORMATION
  Report Type: Report from Study
  Country: US (occurrence: US)
  Receive Date: 20241018
  Receipt Date: 20241018
  Transmission Date: 20250115
  Serious: No
  Sender: ROCHE
  Company Number: US-ROCHE-3521992

PATIENT
  Age: 30 Year
  Sex: Female
  Weight: 122.0 kg

DRUGS (4)
  1. XOLAIR [Suspect]
     Active Substance: OMALIZUMAB
     Indication: Asthma
     Route: 058
  2. XOLAIR [Suspect]
     Active Substance: OMALIZUMAB
     Indication: Dyspnoea
  3. MONTELUKAST [Concomitant]
     Active Substance: MONTELUKAST
  4. ALBUTEROL SULFATE [Concomitant]
     Active Substance: ALBUTEROL SULFATE

REACTIONS (9)
  - Cough [Unknown]
  - Dyspnoea [Unknown]
  - Respiratory syncytial virus infection [Unknown]
  - Chest pain [Unknown]
  - Wheezing [Unknown]
  - Dysphonia [Unknown]
  - Red blood cell count increased [Unknown]
  - Lymphocyte count increased [Unknown]
  - Off label use [Unknown]

NARRATIVE: CASE EVENT DATE: 20240219
